FAERS Safety Report 4577120-4 (Version None)
Quarter: 2005Q1

REPORT INFORMATION
  Report Type: 
  Country: None (occurrence: None)
  Receive Date: 20050210
  Receipt Date: 20040115
  Transmission Date: 20050727
  Serious: Yes (Life-Threatening, Hospitalization, Disabling)
  Sender: FDA-Public Use
  Company Number: US-ROCHE-356278

PATIENT
  Age: 12 Year
  Sex: Female
  Weight: 65.8 kg

DRUGS (1)
  1. ACCUTANE [Suspect]
     Route: 048
     Dates: start: 19961229, end: 19970221

REACTIONS (78)
  - AGITATION [None]
  - ANAPHYLACTIC REACTION [None]
  - ANGER [None]
  - AORTIC VALVE INCOMPETENCE [None]
  - ASCITES [None]
  - AUTOIMMUNE DISORDER [None]
  - BENIGN INTRACRANIAL HYPERTENSION [None]
  - BLEEDING TIME PROLONGED [None]
  - BLINDNESS CORTICAL [None]
  - BRAIN HERNIATION [None]
  - CEREBRAL INFARCTION [None]
  - CERVICOBRACHIAL SYNDROME [None]
  - COLITIS ULCERATIVE [None]
  - CONFUSIONAL STATE [None]
  - DEPRESSION [None]
  - DILATATION VENTRICULAR [None]
  - DISTURBANCE IN ATTENTION [None]
  - DIZZINESS [None]
  - DYSPHAGIA [None]
  - DYSPNOEA [None]
  - DYSTHYMIC DISORDER [None]
  - EMOTIONAL DISTRESS [None]
  - ENCEPHALITIS [None]
  - ENCEPHALOMALACIA [None]
  - ENDOMETRIOSIS [None]
  - FATIGUE [None]
  - GRAND MAL CONVULSION [None]
  - HALLUCINATION [None]
  - HEADACHE [None]
  - HEPATITIS [None]
  - HEPATOSPLENOMEGALY [None]
  - HYPERTENSION [None]
  - ILEUS [None]
  - ILL-DEFINED DISORDER [None]
  - INFLAMMATORY BOWEL DISEASE [None]
  - INSOMNIA [None]
  - INTERNAL INJURY [None]
  - INTERVERTEBRAL DISC DEGENERATION [None]
  - INTRACRANIAL PRESSURE INCREASED [None]
  - IRRITABILITY [None]
  - IRRITABLE BOWEL SYNDROME [None]
  - LOSS OF CONSCIOUSNESS [None]
  - LUPUS NEPHRITIS [None]
  - MEMORY IMPAIRMENT [None]
  - MENINGOMYELOCELE [None]
  - MENSTRUATION IRREGULAR [None]
  - MENTAL DISORDER [None]
  - MENTAL DISORDER DUE TO A GENERAL MEDICAL CONDITION [None]
  - MITRAL VALVE INCOMPETENCE [None]
  - MYOPIA [None]
  - NASAL DRYNESS [None]
  - NECK PAIN [None]
  - NERVOUS SYSTEM DISORDER [None]
  - ORTHOPNOEA [None]
  - PAIN [None]
  - PANCREATITIS [None]
  - PERICARDIAL EFFUSION [None]
  - POLYP [None]
  - RAYNAUD'S PHENOMENON [None]
  - RENAL FAILURE [None]
  - ROAD TRAFFIC ACCIDENT [None]
  - SHARED PSYCHOTIC DISORDER [None]
  - STAPHYLOCOCCAL INFECTION [None]
  - SYNCOPE [None]
  - SYSTEMIC LUPUS ERYTHEMATOSUS [None]
  - TRICUSPID VALVE INCOMPETENCE [None]
  - UPPER RESPIRATORY TRACT INFECTION [None]
  - URETHRAL DISORDER [None]
  - URINARY TRACT INFECTION BACTERIAL [None]
  - UROGENITAL PROLAPSE [None]
  - VAGINAL HAEMORRHAGE [None]
  - VAGINAL MYCOSIS [None]
  - VASCULITIS [None]
  - VASCULITIS CEREBRAL [None]
  - VIRAL PHARYNGITIS [None]
  - VISION BLURRED [None]
  - WEGENER'S GRANULOMATOSIS [None]
  - WEIGHT DECREASED [None]
